FAERS Safety Report 9688383 (Version 1)
Quarter: 2013Q4

REPORT INFORMATION
  Report Type: Spontaneous
  Country: US (occurrence: None)
  Receive Date: 20131113
  Receipt Date: 20131113
  Transmission Date: 20140711
  Serious: No
  Sender: FDA-Public Use
  Company Number: None

PATIENT
  Age: 55 Year
  Sex: Male
  Weight: 108.86 kg

DRUGS (1)
  1. CLINDAMYCIN [Suspect]
     Indication: ESCHERICHIA INFECTION
     Dates: start: 20130904, end: 20130911

REACTIONS (3)
  - Joint swelling [None]
  - Groin pain [None]
  - Musculoskeletal pain [None]
